FAERS Safety Report 6012522-0 (Version None)
Quarter: 2008Q4

REPORT INFORMATION
  Report Type: 
  Country: None (occurrence: None)
  Receive Date: 20081218
  Receipt Date: 20081202
  Transmission Date: 20090506
  Serious: No
  Sender: FDA-Public Use
  Company Number: US-B.I. PHARMACEUTICALS,INC./RIDGEFIELD-2008-BP-18140BP

PATIENT
  Age: 4 Decade
  Sex: Male

DRUGS (1)
  1. MIRAPEX [Suspect]
     Indication: RESTLESS LEGS SYNDROME
     Dosage: .125MG

REACTIONS (4)
  - DISTURBANCE IN SEXUAL AROUSAL [None]
  - ERECTION INCREASED [None]
  - LIBIDO INCREASED [None]
  - SPONTANEOUS PENILE ERECTION [None]
